FAERS Safety Report 8868811 (Version 1)
Quarter: 2012Q4

REPORT INFORMATION
  Report Type: 
  Country: US (occurrence: US)
  Receive Date: 20121026
  Receipt Date: 20121026
  Transmission Date: 20130627
  Serious: No
  Sender: FDA-Public Use
  Company Number: US-AMGEN-USASP2012047462

PATIENT
  Age: 73 Year
  Sex: Female
  Weight: 66 kg

DRUGS (22)
  1. ENBREL [Suspect]
     Indication: PRODUCT USED FOR UNKNOWN INDICATION
     Dosage: 50 mg, qwk
     Route: 058
  2. RESTASIS [Concomitant]
     Dosage: UNK
  3. PLAQUENIL                          /00072602/ [Concomitant]
     Dosage: 200 mg, UNK
  4. PREMARIN VAGINAL [Concomitant]
     Dosage: 0.625 mg, UNK
  5. ACCUPRIL [Concomitant]
     Dosage: 40 mg, UNK
  6. NORTRIPTYLIN [Concomitant]
     Dosage: 25 mg, UNK
  7. ASACOL [Concomitant]
     Dosage: 400 mg, UNK
  8. PRILOSEC                           /00661201/ [Concomitant]
     Dosage: 40 mg, UNK
  9. HYDROCHLOROTH [Concomitant]
     Dosage: 12.5 mg, UNK
  10. MULTIVITAMIN                       /00097801/ [Concomitant]
  11. LACTULOSE [Concomitant]
     Dosage: 20 g/30
  12. THERATEARS [Concomitant]
     Dosage: UNK
  13. SALAGEN [Concomitant]
     Dosage: 5 mg, UNK
  14. ASPIRIN (E.C.) [Concomitant]
     Dosage: 81 mg, UNK
  15. TYLENOL ALLERGY MULTI SYMPTOM [Concomitant]
     Dosage: UNK
  16. DOXYCYCLA [Concomitant]
     Dosage: 75 mg, UNK
  17. FOLIC ACID [Concomitant]
     Dosage: UNK
  18. CALCIUM-D-SANDOZ [Concomitant]
     Dosage: UNK
  19. VITAMIN B12                        /00056201/ [Concomitant]
     Dosage: 500 mug, UNK
  20. OMEGA-3                            /01866101/ [Concomitant]
     Dosage: UNK
  21. ZINC [Concomitant]
     Dosage: 30 mg, UNK
  22. IRON [Concomitant]
     Dosage: 18 mg, UNK

REACTIONS (1)
  - Hernia [Recovered/Resolved]
